FAERS Safety Report 9004632 (Version 1)
Quarter: 2013Q1

REPORT INFORMATION
  Report Type: Spontaneous
  Country: US (occurrence: None)
  Receive Date: 20130103
  Receipt Date: 20130103
  Transmission Date: 20140127
  Serious: Yes (Life-Threatening, Hospitalization)
  Sender: FDA-Public Use
  Company Number: None

PATIENT
  Age: 10 Year
  Sex: Male
  Weight: 50 kg

DRUGS (1)
  1. TYLENOL WITH CODEINE [Suspect]
     Indication: PROCEDURAL PAIN
     Dosage: 2 TEASPOON EVERY 4 HOURS PO
     Route: 048
     Dates: start: 20121225, end: 20121231

REACTIONS (4)
  - Unresponsive to stimuli [None]
  - Oxygen saturation decreased [None]
  - Headache [None]
  - Somnolence [None]
